FAERS Safety Report 4609999-1 (Version None)
Quarter: 2005Q1

REPORT INFORMATION
  Report Type: 
  Country: None (occurrence: None)
  Receive Date: 20050315
  Receipt Date: 20050309
  Transmission Date: 20050727
  Serious: Yes (Other)
  Sender: FDA-Public Use
  Company Number: GBWYE493210MAR05

PATIENT
  Age: 18 Year
  Sex: Male

DRUGS (2)
  1. EFFEXOR XR [Suspect]
     Indication: MAJOR DEPRESSION
     Dosage: 75 MG , ORAL
     Route: 048
     Dates: start: 20050228
  2. OLANZAPINE [Concomitant]

REACTIONS (1)
  - WOLFF-PARKINSON-WHITE SYNDROME [None]
